FAERS Safety Report 4421297-8 (Version None)
Quarter: 2004Q3

REPORT INFORMATION
  Report Type: 
  Country: None (occurrence: None)
  Receive Date: 20040809
  Receipt Date: 20040525
  Transmission Date: 20050211
  Serious: Yes (Life-Threatening, Hospitalization)
  Sender: FDA-Public Use
  Company Number: JP-MERCK-0405USA02067

PATIENT
  Age: 55 Year
  Sex: Female

DRUGS (7)
  1. [THERAPY UNSPECIFIED] [Suspect]
     Indication: GASTRIC CANCER
     Route: 048
     Dates: start: 20020615, end: 20040503
  2. PEPCID RPD [Suspect]
     Indication: PROPHYLAXIS
     Route: 048
     Dates: start: 20020601, end: 20040513
  3. LASIX [Concomitant]
     Route: 048
     Dates: start: 20030716
  4. LENTINAN [Concomitant]
     Route: 042
     Dates: start: 20031101, end: 20040329
  5. PREDONINE [Concomitant]
     Route: 048
     Dates: start: 20020601
  6. RHYTHMY [Concomitant]
     Route: 048
     Dates: start: 20030409
  7. PURSENNID [Concomitant]
     Route: 048
     Dates: start: 20031101

REACTIONS (4)
  - MALIGNANT PLEURAL EFFUSION [None]
  - POLYMYOSITIS [None]
  - RHABDOMYOLYSIS [None]
  - SCIATICA [None]
